FAERS Safety Report 5369785-4 (Version None)
Quarter: 2007Q2

REPORT INFORMATION
  Report Type: 
  Country: None (occurrence: None)
  Receive Date: 20070621
  Receipt Date: 20070612
  Transmission Date: 20071010
  Serious: Yes (Hospitalization)
  Sender: FDA-Public Use
  Company Number: 163-21880-07030127

PATIENT
  Age: 65 Year
  Sex: Male

DRUGS (10)
  1. REVLIMID [Suspect]
     Indication: MULTIPLE MYELOMA
     Dosage: SEE IMAGE
     Route: 048
     Dates: start: 20061114, end: 20070101
  2. REVLIMID [Suspect]
     Indication: MULTIPLE MYELOMA
     Dosage: SEE IMAGE
     Route: 048
     Dates: start: 20070409
  3. ZOMETA [Concomitant]
  4. NEXIUM [Concomitant]
  5. MS CONTIN [Concomitant]
  6. TEMAZEPAM [Concomitant]
  7. ASPIRIN [Concomitant]
  8. DECADRON [Concomitant]
  9. FLOMAX (TAMSULOSIN HDYROCHLORIDE) [Concomitant]
  10. AMOXCILLIN (AMOXCILLIN) [Concomitant]

REACTIONS (7)
  - CONJUNCTIVITIS VIRAL [None]
  - DIARRHOEA [None]
  - FEBRILE NEUTROPENIA [None]
  - LOBAR PNEUMONIA [None]
  - SINUSITIS [None]
  - THROMBOCYTOPENIA [None]
  - WHITE BLOOD CELL COUNT DECREASED [None]
